FAERS Safety Report 9984755 (Version 1)
Quarter: 2014Q1

REPORT INFORMATION
  Report Type: Spontaneous
  Country: US (occurrence: US)
  Receive Date: 20140307
  Receipt Date: 20140307
  Transmission Date: 20141002
  Serious: Yes (Other)
  Sender: FDA-Public Use
  Company Number: PHHY2014US024425

PATIENT
  Age: 18 Year
  Sex: Female

DRUGS (5)
  1. POTASSIUM CHLORIDE [Suspect]
     Route: 065
  2. DOXYCYCLINE [Suspect]
     Dosage: 200 MG, EVERY 12 HOURS
     Route: 048
  3. TICARCILLIN [Suspect]
     Indication: AMNIOTIC CAVITY INFECTION
     Dosage: 3.1 G, EVERY 6 HOURS
     Route: 042
  4. CLAVULANATE POTASSIUM [Suspect]
     Indication: AMNIOTIC CAVITY INFECTION
     Route: 042
  5. OXYTOCIN [Suspect]
     Route: 042

REACTIONS (7)
  - Amniotic cavity infection [Unknown]
  - Tachycardia [Unknown]
  - Body temperature increased [Unknown]
  - Premature labour [Unknown]
  - Premature rupture of membranes [Unknown]
  - Breech presentation [Unknown]
  - Maternal exposure during pregnancy [Unknown]
